FAERS Safety Report 8223789-2 (Version None)
Quarter: 2012Q1

REPORT INFORMATION
  Report Type: 
  Country: None (occurrence: None)
  Receive Date: 20120321
  Receipt Date: 20120321
  Transmission Date: 20120608
  Serious: Yes (Life-Threatening, Hospitalization, Disabling)
  Sender: FDA-Public Use
  Company Number: None

PATIENT
  Age: 41 Year
  Sex: Male
  Weight: 78.471 kg

DRUGS (2)
  1. WAL-PHED [Suspect]
     Indication: RESPIRATORY DISORDER
     Dosage: 1 120MG PILL
     Route: 048
     Dates: start: 20120304, end: 20120304
  2. PSEUDOEPHEDRINE HCL [Concomitant]

REACTIONS (3)
  - CAROTID ARTERY DISSECTION [None]
  - TRANSIENT ISCHAEMIC ATTACK [None]
  - CEREBROVASCULAR ACCIDENT [None]
